FAERS Safety Report 11363906 (Version 1)
Quarter: 2015Q3

REPORT INFORMATION
  Report Type: Spontaneous
  Country: US (occurrence: None)
  Receive Date: 20150810
  Receipt Date: 20150810
  Transmission Date: 20151125
  Serious: Yes (Life-Threatening, Hospitalization, Disabling)
  Sender: FDA-Public Use
  Company Number: None

PATIENT
  Age: 48 Year
  Sex: Female
  Weight: 72.12 kg

DRUGS (5)
  1. LASIX [Concomitant]
     Active Substance: FUROSEMIDE
  2. POTASSIUM [Concomitant]
     Active Substance: POTASSIUM
  3. BENICAR [Suspect]
     Active Substance: OLMESARTAN MEDOXOMIL
     Dosage: 1 PILL
     Route: 048
  4. METOPROLOL [Concomitant]
     Active Substance: METOPROLOL
  5. PROTONIX [Concomitant]
     Active Substance: PANTOPRAZOLE SODIUM

REACTIONS (9)
  - Diarrhoea [None]
  - Weight decreased [None]
  - Hepatic enzyme increased [None]
  - Nausea [None]
  - Peripheral swelling [None]
  - Asthenia [None]
  - Coeliac disease [None]
  - Swelling face [None]
  - Impaired work ability [None]

NARRATIVE: CASE EVENT DATE: 20150428
